FAERS Safety Report 10435324 (Version 2)
Quarter: 2014Q3

REPORT INFORMATION
  Report Type: Spontaneous
  Country: CA (occurrence: CA)
  Receive Date: 20140908
  Receipt Date: 20140908
  Transmission Date: 20150326
  Serious: Yes (Death, Other)
  Sender: FDA-Public Use
  Company Number: CA-ROCHE-429840

PATIENT
  Age: 34 Year
  Sex: Male

DRUGS (3)
  1. PEGASYS [Suspect]
     Active Substance: PEGINTERFERON ALFA-2A
     Indication: HEPATITIS C
     Dosage: PEG-INTERFERON ALFA 2A ROUTE/FORM/STRENGTH IS: SUBCUTANEOUS/180MCG SYRINGE, DOSE:180 MCG PER WEEK. +
     Route: 058
     Dates: start: 200509, end: 20051101
  2. ATIVAN [Concomitant]
     Active Substance: LORAZEPAM
     Indication: ANXIETY
     Dosage: PATIENT WAS ABUSING USE OF LORAZEPAM. TOOK 120 OF THE 5 MG TABLETS IN ONE MONTH.
     Route: 048
  3. RIBAVIRIN. [Suspect]
     Active Substance: RIBAVIRIN
     Indication: HEPATITIS C
     Route: 048

REACTIONS (12)
  - Back pain [Not Recovered/Not Resolved]
  - Pruritus [Recovered/Resolved]
  - Tinnitus [Recovered/Resolved]
  - Insomnia [Not Recovered/Not Resolved]
  - Flushing [Not Recovered/Not Resolved]
  - Completed suicide [Fatal]
  - Feeling hot [Recovered/Resolved]
  - Decreased appetite [Not Recovered/Not Resolved]
  - Hepatic cirrhosis [Recovered/Resolved]
  - Anxiety [Not Recovered/Not Resolved]
  - Nausea [Recovered/Resolved]
  - Chills [Not Recovered/Not Resolved]

NARRATIVE: CASE EVENT DATE: 200509
